FAERS Safety Report 12749106 (Version 2)
Quarter: 2017Q4

REPORT INFORMATION
  Report Type: Spontaneous
  Country: US (occurrence: US)
  Receive Date: 20160915
  Receipt Date: 20171117
  Transmission Date: 20180320
  Serious: Yes (Other)
  Sender: FDA-Public Use
  Company Number: US-ASTELLAS-2016US012310

PATIENT
  Sex: Male

DRUGS (3)
  1. XTANDI [Suspect]
     Active Substance: ENZALUTAMIDE
     Indication: HORMONE-REFRACTORY PROSTATE CANCER
     Route: 065
     Dates: start: 20160204
  2. LUPRON [Concomitant]
     Active Substance: LEUPROLIDE ACETATE
     Indication: PRODUCT USED FOR UNKNOWN INDICATION
     Dosage: UNK UNK, UNKNOWN FREQ.
     Route: 065
  3. XTANDI [Suspect]
     Active Substance: ENZALUTAMIDE
     Dosage: 160 MG, ONCE DAILY (40 MG X 4)
     Route: 048
     Dates: start: 20160227, end: 201610

REACTIONS (9)
  - Prostatic specific antigen increased [Unknown]
  - Myocardial infarction [Unknown]
  - Cerebral haemorrhage [Unknown]
  - Fall [Unknown]
  - Dizziness [Unknown]
  - Prostatic specific antigen increased [Unknown]
  - Prostatic specific antigen increased [Unknown]
  - Influenza [Unknown]
  - Hip fracture [Unknown]

NARRATIVE: CASE EVENT DATE: 2016
